FAERS Safety Report 14572491 (Version 1)
Quarter: 2018Q1

REPORT INFORMATION
  Report Type: Spontaneous
  Country: IL (occurrence: IL)
  Receive Date: 20180226
  Receipt Date: 20180226
  Transmission Date: 20180509
  Serious: Yes (Hospitalization)
  Sender: FDA-Public Use
  Company Number: IL-ACTELION-A-CH2018-167843

PATIENT
  Age: 53 Year
  Sex: Female

DRUGS (10)
  1. CARVEDILOL. [Concomitant]
     Active Substance: CARVEDILOL
  2. NORVASC [Concomitant]
     Active Substance: AMLODIPINE BESYLATE
  3. PRAVASTATIN. [Concomitant]
     Active Substance: PRAVASTATIN
  4. UPTRAVI [Suspect]
     Active Substance: SELEXIPAG
     Indication: PULMONARY ARTERIAL HYPERTENSION
     Dosage: 200 MCG, BID
     Route: 048
     Dates: start: 20171212, end: 20180214
  5. TRITACE [Concomitant]
     Active Substance: RAMIPRIL
  6. FUSID [Concomitant]
     Active Substance: FUROSEMIDE
  7. SILDENAFIL CITRATE. [Concomitant]
     Active Substance: SILDENAFIL CITRATE
  8. ASPIRIN. [Concomitant]
     Active Substance: ASPIRIN
  9. VOLIBRIS [Concomitant]
     Active Substance: AMBRISENTAN
  10. SPIRONOLACTON [Concomitant]
     Active Substance: SPIRONOLACTONE

REACTIONS (6)
  - Dizziness [Recovering/Resolving]
  - Dyspnoea [Recovered/Resolved]
  - Back pain [Recovering/Resolving]
  - Feeling hot [Not Recovered/Not Resolved]
  - Headache [Not Recovered/Not Resolved]
  - Oxygen saturation decreased [Recovered/Resolved]

NARRATIVE: CASE EVENT DATE: 20180207
